FAERS Safety Report 8121965-0 (Version None)
Quarter: 2012Q1

REPORT INFORMATION
  Report Type: 
  Country: None (occurrence: None)
  Receive Date: 20120208
  Receipt Date: 20120203
  Transmission Date: 20120608
  Serious: Yes (Other)
  Sender: FDA-Public Use
  Company Number: US-PFIZER INC-2012006764

PATIENT
  Sex: Male

DRUGS (2)
  1. CHANTIX [Suspect]
     Indication: SMOKING CESSATION THERAPY
     Dosage: UNK
     Route: 048
     Dates: start: 20111008, end: 20120102
  2. CHANTIX [Suspect]

REACTIONS (4)
  - AGGRESSION [None]
  - ANGER [None]
  - ABNORMAL BEHAVIOUR [None]
  - IRRITABILITY [None]
